FAERS Safety Report 8327826-6 (Version None)
Quarter: 2012Q2

REPORT INFORMATION
  Report Type: 
  Country: None (occurrence: None)
  Receive Date: 20120502
  Receipt Date: 20120418
  Transmission Date: 20120825
  Serious: Yes (Hospitalization, Other)
  Sender: FDA-Public Use
  Company Number: CN-JNJFOC-20110901092

PATIENT
  Sex: Female
  Weight: 72.5 kg

DRUGS (2)
  1. RISPERDAL [Suspect]
     Indication: SCHIZOPHRENIA
     Dosage: 2 MG IN AM AND 4 MG IN PM
     Route: 048
     Dates: start: 20040907
  2. VALPROATE SODIUM [Concomitant]
     Indication: SCHIZOPHRENIA
     Route: 048
     Dates: start: 20040101

REACTIONS (5)
  - IRRITABILITY [None]
  - RESTLESSNESS [None]
  - TABLET PHYSICAL ISSUE [None]
  - MENTAL DISORDER [None]
  - OCULOGYRIC CRISIS [None]
